FAERS Safety Report 6532661-5 (Version None)
Quarter: 2010Q1

REPORT INFORMATION
  Report Type: 
  Country: None (occurrence: None)
  Receive Date: 20100111
  Receipt Date: 20091208
  Transmission Date: 20100710
  Serious: Yes (Hospitalization, Other)
  Sender: FDA-Public Use
  Company Number: IE-CELGENEUS-229-20484-09121742

PATIENT
  Age: 30 Year
  Sex: Female
  Weight: 68 kg

DRUGS (3)
  1. INNOHEP [Suspect]
     Route: 058
     Dates: start: 20070524, end: 20070801
  2. INNOHEP [Suspect]
     Route: 058
  3. DEXAMETHASONE [Concomitant]
     Indication: PAIN
     Route: 030
     Dates: start: 20070722, end: 20070723

REACTIONS (6)
  - ANTEPARTUM HAEMORRHAGE [None]
  - DEEP VEIN THROMBOSIS [None]
  - DRUG EXPOSURE DURING PREGNANCY [None]
  - PERIPHERAL ISCHAEMIA [None]
  - PREMATURE LABOUR [None]
  - PREMATURE SEPARATION OF PLACENTA [None]
